FAERS Safety Report 4323761-9 (Version None)
Quarter: 2004Q1

REPORT INFORMATION
  Report Type: 
  Country: None (occurrence: None)
  Receive Date: 20040323
  Receipt Date: 20040308
  Transmission Date: 20041129
  Serious: Yes (Other)
  Sender: FDA-Public Use
  Company Number: 2004015297

PATIENT
  Age: 75 Year
  Sex: Male

DRUGS (9)
  1. AMLODIPINE [Suspect]
     Indication: ILL-DEFINED DISORDER
     Dosage: ORAL
     Route: 048
  2. BUFFERIN (ACETYLSALICYLIC ACID, MAGNESIUM CARBONATE, ALUMINIUM GYCINAT [Concomitant]
  3. DEXTROMETHORPHAN HYDROBROMIDE [Concomitant]
  4. SERRAPEPTASE [Concomitant]
  5. LEVOFLOXACIN [Concomitant]
  6. ADENOSINE TRIPHOSPHATE, DISODIUM SALT [Concomitant]
  7. RANITIDINE HYDROCHLORIDE [Concomitant]
  8. POTASSIUM GLUCONATE             (POTASSIUM GLUCONATE) [Concomitant]
  9. LOSARTAN POTASSIUM                (LOSARTAN POTASSIUM) [Concomitant]

REACTIONS (4)
  - ANAEMIA MEGALOBLASTIC [None]
  - LIVER FUNCTION TEST ABNORMAL [None]
  - MALNUTRITION [None]
  - PANCYTOPENIA [None]
